FAERS Safety Report 25495281 (Version 1)
Quarter: 2025Q2

REPORT INFORMATION
  Report Type: Spontaneous
  Country: GB (occurrence: GB)
  Receive Date: 20250630
  Receipt Date: 20250630
  Transmission Date: 20250716
  Serious: Yes (Life-Threatening, Hospitalization)
  Sender: MYLAN
  Company Number: GB-MYLANLABS-2025M1055034

PATIENT
  Age: 3 Decade
  Sex: Female

DRUGS (12)
  1. MIRTAZAPINE [Suspect]
     Active Substance: MIRTAZAPINE
     Indication: Product used for unknown indication
  2. MIRTAZAPINE [Suspect]
     Active Substance: MIRTAZAPINE
     Route: 048
  3. MIRTAZAPINE [Suspect]
     Active Substance: MIRTAZAPINE
     Route: 048
  4. MIRTAZAPINE [Suspect]
     Active Substance: MIRTAZAPINE
  5. ACETAMINOPHEN [Suspect]
     Active Substance: ACETAMINOPHEN
     Indication: Product used for unknown indication
  6. ACETAMINOPHEN [Suspect]
     Active Substance: ACETAMINOPHEN
     Route: 048
  7. ACETAMINOPHEN [Suspect]
     Active Substance: ACETAMINOPHEN
     Route: 048
  8. ACETAMINOPHEN [Suspect]
     Active Substance: ACETAMINOPHEN
  9. CODEINE [Suspect]
     Active Substance: CODEINE
     Indication: Product used for unknown indication
  10. CODEINE [Suspect]
     Active Substance: CODEINE
     Route: 048
  11. CODEINE [Suspect]
     Active Substance: CODEINE
     Route: 048
  12. CODEINE [Suspect]
     Active Substance: CODEINE

REACTIONS (9)
  - Intentional overdose [Unknown]
  - Acute hepatic failure [Recovering/Resolving]
  - Hepatic encephalopathy [Recovering/Resolving]
  - Hyperammonaemia [Recovering/Resolving]
  - Metabolic acidosis [Recovering/Resolving]
  - Coagulopathy [Recovering/Resolving]
  - Intracranial pressure increased [Recovered/Resolved]
  - Brain oedema [Recovered/Resolved]
  - IIIrd nerve paralysis [Recovered/Resolved]
